FAERS Safety Report 7147986-2 (Version None)
Quarter: 2010Q4

REPORT INFORMATION
  Report Type: 
  Country: None (occurrence: None)
  Receive Date: 20101206
  Receipt Date: 20101206
  Transmission Date: 20110411
  Serious: Yes (Other)
  Sender: FDA-Public Use
  Company Number: None

PATIENT
  Age: 48 Year
  Sex: Female
  Weight: 54.4316 kg

DRUGS (1)
  1. BONIVA [Suspect]
     Indication: OSTEOPOROSIS
     Dosage: 150MG 1 PO
     Route: 048
     Dates: start: 20101202, end: 20101202

REACTIONS (3)
  - ARTHRALGIA [None]
  - BACK PAIN [None]
  - CHEST PAIN [None]
